FAERS Safety Report 25607744 (Version 3)
Quarter: 2025Q3

REPORT INFORMATION
  Report Type: Spontaneous
  Country: CA (occurrence: CA)
  Receive Date: 20250725
  Receipt Date: 20250901
  Transmission Date: 20251020
  Serious: Yes (Other)
  Sender: NOVARTIS
  Company Number: CA-002147023-NVSC2025CA117915

PATIENT
  Sex: Male

DRUGS (9)
  1. OMALIZUMAB [Suspect]
     Active Substance: OMALIZUMAB
     Indication: Chronic spontaneous urticaria
     Route: 065
     Dates: start: 20210401
  2. CYCLOSPORINE [Suspect]
     Active Substance: CYCLOSPORINE
     Indication: Chronic spontaneous urticaria
     Dosage: 150 MG, BID
     Route: 065
     Dates: start: 20240501, end: 20250415
  3. KETOTIFEN [Suspect]
     Active Substance: KETOTIFEN
     Indication: Chronic spontaneous urticaria
     Route: 065
     Dates: start: 20220504, end: 20221204
  4. RUPATADINE [Suspect]
     Active Substance: RUPATADINE
     Indication: Chronic spontaneous urticaria
     Dosage: 20 MG, BID
     Route: 065
     Dates: start: 20241101
  5. DIPHENHYDRAMINE [Suspect]
     Active Substance: DIPHENHYDRAMINE
     Indication: Chronic spontaneous urticaria
     Route: 065
     Dates: start: 20240501
  6. HYDROXYZINE [Suspect]
     Active Substance: HYDROXYZINE HYDROCHLORIDE
     Indication: Chronic spontaneous urticaria
     Dosage: 25 MG, TID (1-2 TABS)
     Route: 065
     Dates: start: 20220701, end: 20230201
  7. PREDNISONE [Suspect]
     Active Substance: PREDNISONE
     Indication: Chronic spontaneous urticaria
     Route: 065
     Dates: start: 20210304, end: 20240304
  8. EPINEPHRINE [Suspect]
     Active Substance: EPINEPHRINE
     Indication: Chronic spontaneous urticaria
     Route: 065
  9. BILASTINE [Suspect]
     Active Substance: BILASTINE
     Indication: Chronic spontaneous urticaria
     Dosage: 20 MG, BID (PRN)
     Route: 065
     Dates: start: 20210701

REACTIONS (3)
  - Chronic spontaneous urticaria [Unknown]
  - Drug ineffective [Unknown]
  - Off label use [Unknown]
